FAERS Safety Report 10225543 (Version 1)
Quarter: 2014Q2

REPORT INFORMATION
  Report Type: Spontaneous
  Country: US (occurrence: US)
  Receive Date: 20140609
  Receipt Date: 20140609
  Transmission Date: 20141212
  Serious: Yes (Other)
  Sender: FDA-Public Use
  Company Number: US-ASTELLAS-2014US000010

PATIENT
  Age: 69 Year
  Sex: Female

DRUGS (8)
  1. LOTENSIN                           /00498401/ [Concomitant]
     Indication: BLOOD PRESSURE
  2. CELEXA                             /00582602/ [Concomitant]
     Indication: DEPRESSION
     Route: 048
  3. XANAX [Concomitant]
     Indication: ANXIETY
     Route: 048
  4. ALLOPURINOL [Concomitant]
     Indication: PRODUCT USED FOR UNKNOWN INDICATION
     Route: 048
  5. FAMOTIDINE [Concomitant]
     Indication: DYSPEPSIA
     Route: 048
  6. PROMETHAZINE [Concomitant]
     Indication: NAUSEA
     Route: 048
  7. PROGRAF [Suspect]
     Indication: LIVER TRANSPLANT
     Route: 048
     Dates: start: 19921130
  8. INCIVEK [Concomitant]
     Indication: PRODUCT USED FOR UNKNOWN INDICATION
     Route: 065
     Dates: start: 20130820, end: 20131112

REACTIONS (1)
  - Hepatic infection [Unknown]
